FAERS Safety Report 21810691 (Version 1)
Quarter: 2023Q1

REPORT INFORMATION
  Report Type: Report from Study
  Country: US (occurrence: US)
  Receive Date: 20230103
  Receipt Date: 20230103
  Transmission Date: 20230418
  Serious: No
  Sender: FDA-Public Use
  Company Number: US-ABBVIE-4212447

PATIENT
  Sex: Female

DRUGS (2)
  1. SYNTHROID [Suspect]
     Active Substance: LEVOTHYROXINE SODIUM
     Indication: Hypothyroidism
     Dosage: STRENGTH: 25 MICROGRAM
     Route: 048
     Dates: end: 202209
  2. SYNTHROID [Suspect]
     Active Substance: LEVOTHYROXINE SODIUM
     Indication: Hypothyroidism
     Dosage: STRENGTH: 50 MICROGRAM?EVENT ONSET DATE FOR HEART FLUTTERS: 2022?EVENT CESSATION DATE FOR HEART F...
     Route: 048
     Dates: start: 202209

REACTIONS (1)
  - Cardiac flutter [Recovered/Resolved]
